FAERS Safety Report 10332807 (Version 2)
Quarter: 2014Q3

REPORT INFORMATION
  Report Type: Spontaneous
  Country: JP (occurrence: JP)
  Receive Date: 20140722
  Receipt Date: 20140722
  Transmission Date: 20150326
  Serious: Yes (Hospitalization, Other)
  Sender: FDA-Public Use
  Company Number: PHHY2014JP080308

PATIENT
  Age: 51 Year
  Sex: Male

DRUGS (1)
  1. DIOVAN [Suspect]
     Active Substance: VALSARTAN
     Indication: HYPERTENSION
     Dosage: 60 MG DAILY (20MG IN THE MORNING AND 40MG IN THE EVENING)
     Route: 048

REACTIONS (4)
  - Blood creatinine increased [Unknown]
  - Renal failure [Unknown]
  - Creatinine renal clearance decreased [Unknown]
  - Brain neoplasm [Recovered/Resolved]

NARRATIVE: CASE EVENT DATE: 20140626
